FAERS Safety Report 17414927 (Version 2)
Quarter: 2020Q1

REPORT INFORMATION
  Report Type: Report from Study
  Country: US (occurrence: US)
  Receive Date: 20200213
  Receipt Date: 20200304
  Transmission Date: 20200409
  Serious: Yes (Hospitalization, Other)
  Sender: FDA-Public Use
  Company Number: US-EISAI MEDICAL RESEARCH-EC-2020-069994

PATIENT
  Age: 59 Year
  Sex: Male

DRUGS (2)
  1. LENVIMA [Suspect]
     Active Substance: LENVATINIB
     Indication: RENAL CELL CARCINOMA
     Route: 048
     Dates: start: 20200121, end: 20200126
  2. LENVIMA [Suspect]
     Active Substance: LENVATINIB
     Indication: RENAL DISORDER

REACTIONS (11)
  - Brain oedema [Not Recovered/Not Resolved]
  - Tumour haemorrhage [Recovered/Resolved with Sequelae]
  - Pain [Not Recovered/Not Resolved]
  - Encephalitis [Not Recovered/Not Resolved]
  - Palpitations [Unknown]
  - Hemiparesis [Not Recovered/Not Resolved]
  - Stress [Not Recovered/Not Resolved]
  - Pulmonary embolism [Not Recovered/Not Resolved]
  - Tachycardia [Unknown]
  - General physical health deterioration [Not Recovered/Not Resolved]
  - Chest pain [Not Recovered/Not Resolved]

NARRATIVE: CASE EVENT DATE: 202001
